FAERS Safety Report 16997252 (Version 2)
Quarter: 2019Q4

REPORT INFORMATION
  Report Type: Spontaneous
  Country: IT (occurrence: IT)
  Receive Date: 20191106
  Receipt Date: 20191118
  Transmission Date: 20200122
  Serious: Yes (Other)
  Sender: FDA-Public Use
  Company Number: IT-LUPIN PHARMACEUTICALS INC.-2019-06956

PATIENT
  Age: 48 Year
  Sex: Male

DRUGS (2)
  1. MEXILETINE [Suspect]
     Active Substance: MEXILETINE
     Indication: MUSCLE HYPERTROPHY
     Dosage: UNK
     Route: 065
  2. POTASSIUM CHLORIDE. [Suspect]
     Active Substance: POTASSIUM CHLORIDE
     Indication: PRODUCT USED FOR UNKNOWN INDICATION
     Dosage: UNK (DOSED BEFORE AND AFTER A 10 MINUTES-EXERCISE)
     Route: 065

REACTIONS (2)
  - Myotonia [Recovering/Resolving]
  - Tachycardia [Unknown]
